FAERS Safety Report 5040628-1 (Version None)
Quarter: 2006Q2

REPORT INFORMATION
  Report Type: 
  Country: None (occurrence: None)
  Receive Date: 20060628
  Receipt Date: 20060612
  Transmission Date: 20061013
  Serious: Yes (Hospitalization)
  Sender: FDA-Public Use
  Company Number: 2006BI002768

PATIENT
  Age: 52 Year
  Sex: Male
  Weight: 66 kg

DRUGS (8)
  1. ZEVALIN [Suspect]
     Indication: BONE MARROW CONDITIONING REGIMEN
     Dosage: 1030 MBQ; 1X; IV
     Route: 042
     Dates: start: 20051117, end: 20051117
  2. RITUXIMAB [Concomitant]
  3. CARMUSTINE [Concomitant]
  4. CYTARABINE [Concomitant]
  5. ETOPOSIDE [Concomitant]
  6. MELPHALAN [Concomitant]
  7. TRIFLUCAN [Concomitant]
  8. ZOVIRAX [Concomitant]

REACTIONS (2)
  - CYTOLYTIC HEPATITIS [None]
  - HAEMOGLOBIN DECREASED [None]
